FAERS Safety Report 11797304 (Version 1)
Quarter: 2015Q4

REPORT INFORMATION
  Report Type: Spontaneous
  Country: IT (occurrence: IT)
  Receive Date: 20151203
  Receipt Date: 20151203
  Transmission Date: 20160305
  Serious: Yes (Other)
  Sender: FDA-Public Use
  Company Number: IT-PFIZER INC-2015418272

PATIENT
  Age: 56 Year
  Sex: Male

DRUGS (5)
  1. CITALOPRAM HYDROBROMIDE. [Concomitant]
     Active Substance: CITALOPRAM HYDROBROMIDE
     Dosage: 15 GTT, UNK
  2. NORVASC [Concomitant]
     Active Substance: AMLODIPINE BESYLATE
     Dosage: 2 DF, UNK
     Dates: start: 20151106, end: 20151112
  3. CLEXANE [Concomitant]
     Active Substance: ENOXAPARIN SODIUM
     Dosage: UNK
     Dates: start: 20151106, end: 20151112
  4. LEVOXACIN [Concomitant]
     Active Substance: LEVOFLOXACIN
     Dosage: 1 DF, UNK
     Route: 042
     Dates: start: 20151106, end: 20151112
  5. TAZOCIN [Suspect]
     Active Substance: PIPERACILLIN SODIUM\TAZOBACTAM SODIUM
     Indication: PNEUMONIA
     Dosage: 1.5 G, DAILY
     Route: 042
     Dates: start: 20151106, end: 20151106

REACTIONS (4)
  - Dyspnoea [Recovered/Resolved]
  - Circumoral oedema [Recovered/Resolved]
  - Tongue oedema [Recovered/Resolved]
  - Urticaria [Recovered/Resolved]

NARRATIVE: CASE EVENT DATE: 20151106
